FAERS Safety Report 16207637 (Version 1)
Quarter: 2019Q2

REPORT INFORMATION
  Report Type: Spontaneous
  Country: ES (occurrence: ES)
  Receive Date: 20190417
  Receipt Date: 20190417
  Transmission Date: 20190711
  Serious: Yes (Other)
  Sender: FDA-Public Use
  Company Number: ES-TEVA-2019-ES-1039855

PATIENT
  Age: 28 Year
  Sex: Male

DRUGS (3)
  1. BRENTUXIMAB VEDOTIN [Concomitant]
     Active Substance: BRENTUXIMAB VEDOTIN
     Indication: NON-HODGKIN^S LYMPHOMA
     Dosage: UNKNOWN FREQUENCY ON DAY 1
     Route: 065
     Dates: start: 20180226, end: 20180226
  2. BENDAMUSTINE HYDROCHLORIDE. [Suspect]
     Active Substance: BENDAMUSTINE HYDROCHLORIDE
     Indication: NON-HODGKIN^S LYMPHOMA
     Dosage: CYCLIC, ON DAY 1 AND 2
     Route: 042
     Dates: start: 20180226, end: 20180227
  3. BENDAMUSTINE HYDROCHLORIDE. [Suspect]
     Active Substance: BENDAMUSTINE HYDROCHLORIDE
     Dosage: CYCLIC
     Route: 042

REACTIONS (1)
  - Type IV hypersensitivity reaction [Recovered/Resolved]
